FAERS Safety Report 10477452 (Version 2)
Quarter: 2014Q3

REPORT INFORMATION
  Report Type: Spontaneous
  Country: RU (occurrence: RU)
  Receive Date: 20140926
  Receipt Date: 20140926
  Transmission Date: 20150326
  Serious: Yes (Hospitalization, Other)
  Sender: FDA-Public Use
  Company Number: RU-BAYER-2014-066245

PATIENT
  Age: 32 Year
  Sex: Female

DRUGS (3)
  1. YAZ PLUS [Suspect]
     Active Substance: DROSPIRENONE\ETHINYL ESTRADIOL
     Dosage: UNK
     Route: 048
     Dates: start: 201403
  2. YAZ [Suspect]
     Active Substance: DROSPIRENONE\ETHINYL ESTRADIOL
     Route: 048
  3. CEFTRIAXONE. [Concomitant]
     Active Substance: CEFTRIAXONE
     Indication: MENINGOCOCCAL INFECTION
     Dosage: UNK
     Dates: start: 20140430, end: 20140504

REACTIONS (7)
  - Headache [Recovered/Resolved]
  - Headache [None]
  - Varicose vein [None]
  - Spider naevus [None]
  - Oedema peripheral [None]
  - Convulsion [Recovered/Resolved]
  - Migraine [Recovered/Resolved]

NARRATIVE: CASE EVENT DATE: 201403
